FAERS Safety Report 4511081-9 (Version None)
Quarter: 2004Q4

REPORT INFORMATION
  Report Type: 
  Country: None (occurrence: None)
  Receive Date: 20041015
  Receipt Date: 20040220
  Transmission Date: 20050328
  Serious: Yes (Other)
  Sender: FDA-Public Use
  Company Number: 2004011726

PATIENT
  Age: 49 Year
  Sex: Male
  Weight: 57.6068 kg

DRUGS (3)
  1. NEURONTIN [Suspect]
     Indication: ILL-DEFINED DISORDER
     Dosage: ORAL
     Route: 048
     Dates: start: 19980101
  2. OXYCODONE HYDROCHLORIDE (OXYCODONE HYDROCHLORIDE) [Suspect]
     Indication: ILL-DEFINED DISORDER
  3. LISINOPRIL [Suspect]
     Indication: ILL-DEFINED DISORDER

REACTIONS (1)
  - SUICIDE ATTEMPT [None]
